FAERS Safety Report 12626095 (Version 2)
Quarter: 2016Q3

REPORT INFORMATION
  Report Type: Spontaneous
  Country: US (occurrence: US)
  Receive Date: 20160805
  Receipt Date: 20160816
  Transmission Date: 20161109
  Serious: Yes (Hospitalization)
  Sender: FDA-Public Use
  Company Number: US-UNITED THERAPEUTICS-UNT-2016-012132

PATIENT
  Sex: Female

DRUGS (2)
  1. REMODULIN [Suspect]
     Active Substance: TREPROSTINIL
     Indication: PULMONARY ARTERIAL HYPERTENSION
     Dosage: 0.060 ?G/KG, CONTINUING
     Route: 041
     Dates: start: 20120928
  2. REMODULIN [Suspect]
     Active Substance: TREPROSTINIL
     Dosage: UNK
     Route: 041
     Dates: start: 20160628, end: 20160809

REACTIONS (3)
  - Asthma [Recovering/Resolving]
  - Oxygen saturation decreased [Recovering/Resolving]
  - Carbon dioxide increased [Recovering/Resolving]

NARRATIVE: CASE EVENT DATE: 20160723
